FAERS Safety Report 4925860-7 (Version None)
Quarter: 2006Q1

REPORT INFORMATION
  Report Type: 
  Country: None (occurrence: None)
  Receive Date: 20060228
  Receipt Date: 20050401
  Transmission Date: 20060701
  Serious: No
  Sender: FDA-Public Use
  Company Number: US-GLAXOSMITHKLINE-A0552345A

PATIENT
  Age: 18 Year
  Sex: Female

DRUGS (8)
  1. LAMICTAL [Suspect]
     Indication: DRUG USE FOR UNKNOWN INDICATION
     Dosage: 50MG TWICE PER DAY
     Route: 048
     Dates: start: 20050103, end: 20050126
  2. GABITRIL [Concomitant]
  3. BENADRYL [Concomitant]
  4. TOPAMAX [Concomitant]
  5. EFFEXOR [Concomitant]
  6. MIDODRINE HCL [Concomitant]
  7. INDERAL [Concomitant]
  8. OVRAL [Concomitant]

REACTIONS (3)
  - EPISTAXIS [None]
  - PYREXIA [None]
  - RASH [None]
